FAERS Safety Report 5280624-2 (Version None)
Quarter: 2007Q1

REPORT INFORMATION
  Report Type: 
  Country: None (occurrence: None)
  Receive Date: 20070329
  Receipt Date: 20070321
  Transmission Date: 20070707
  Serious: Yes (Hospitalization)
  Sender: FDA-Public Use
  Company Number: 2007UW05713

PATIENT
  Age: 73 Year
  Sex: Female

DRUGS (2)
  1. FASLODEX [Suspect]
     Indication: BREAST CANCER
     Route: 030
  2. ZOMETA [Concomitant]
     Indication: METASTASIS

REACTIONS (1)
  - RETROPERITONEAL FIBROSIS [None]
